FAERS Safety Report 4381804-0 (Version None)
Quarter: 2004Q2

REPORT INFORMATION
  Report Type: 
  Country: None (occurrence: None)
  Receive Date: 20040603
  Receipt Date: 20030619
  Transmission Date: 20050107
  Serious: Yes (Other)
  Sender: FDA-Public Use
  Company Number: 200315811US

PATIENT
  Age: 58 Year
  Sex: Female

DRUGS (4)
  1. LOVENOX [Suspect]
     Indication: DEEP VENOUS THROMBOSIS PROPHYLAXIS
     Dosage: 40 MG ONE HOUR PRE-OP AND 24 HOURS POST-OP MG
     Dates: start: 20030601, end: 20030601
  2. BETA BLOCKER [Concomitant]
  3. MORPHINE [Concomitant]
  4. MEFOXIN [Concomitant]

REACTIONS (2)
  - GASTROINTESTINAL HAEMORRHAGE [None]
  - HAEMATOCHEZIA [None]
